FAERS Safety Report 17973737 (Version 1)
Quarter: 2020Q3

REPORT INFORMATION
  Report Type: Spontaneous
  Country: GB (occurrence: GB)
  Receive Date: 20200702
  Receipt Date: 20200702
  Transmission Date: 20201103
  Serious: Yes (Disabling)
  Sender: FDA-Public Use
  Company Number: GB-TEVA-2020-GB-1793237

PATIENT
  Age: 80 Year
  Sex: Female
  Weight: 49.43 kg

DRUGS (10)
  1. PARACETAMOL [Concomitant]
     Active Substance: ACETAMINOPHEN
  2. BISACODYL. [Concomitant]
     Active Substance: BISACODYL
  3. RIVAROXABAN [Concomitant]
     Active Substance: RIVAROXABAN
  4. GABAPENTIN. [Suspect]
     Active Substance: GABAPENTIN
     Indication: NEURALGIA
     Dosage: 100MG DAILY FOR 1 DAY THEN 1 TWICE DAILY FOR 1 DAY THEN 1 THREE TIMES DAILY THERE AFTER
     Route: 048
     Dates: start: 20200529
  5. CARBAMAZEPINE. [Concomitant]
     Active Substance: CARBAMAZEPINE
  6. MACROBID [Concomitant]
     Active Substance: NITROFURANTOIN\NITROFURANTOIN MONOHYDRATE
  7. FUROSEMIDE. [Concomitant]
     Active Substance: FUROSEMIDE
  8. LEVOTHYROXINE. [Concomitant]
     Active Substance: LEVOTHYROXINE
  9. ADIZEM [Concomitant]
     Active Substance: DILTIAZEM HYDROCHLORIDE
  10. BUCCASTEM [Concomitant]
     Active Substance: PROCHLORPERAZINE MALEATE

REACTIONS (3)
  - Urinary tract infection [Recovering/Resolving]
  - Arthralgia [Not Recovered/Not Resolved]
  - Insomnia [Unknown]

NARRATIVE: CASE EVENT DATE: 20200531
